FAERS Safety Report 20808557 (Version 1)
Quarter: 2022Q2

REPORT INFORMATION
  Report Type: Spontaneous
  Country: GR (occurrence: GR)
  Receive Date: 20220510
  Receipt Date: 20220510
  Transmission Date: 20220721
  Serious: Yes (Other)
  Sender: FDA-Public Use
  Company Number: GR-PFIZER INC-202200636096

PATIENT
  Age: 29 Year
  Sex: Male

DRUGS (1)
  1. QUINAPRIL HYDROCHLORIDE [Suspect]
     Active Substance: QUINAPRIL HYDROCHLORIDE
     Indication: Blood pressure increased
     Dosage: 20 MG, 2X/DAY

REACTIONS (5)
  - Product prescribing error [Unknown]
  - Peripheral swelling [Unknown]
  - Blood potassium increased [Unknown]
  - Blood uric acid abnormal [Unknown]
  - Recalled product administered [Unknown]
